FAERS Safety Report 24765204 (Version 1)
Quarter: 2024Q4

REPORT INFORMATION
  Report Type: Spontaneous
  Country: US (occurrence: US)
  Receive Date: 20241223
  Receipt Date: 20241223
  Transmission Date: 20250114
  Serious: Yes (Hospitalization)
  Sender: AUROBINDO
  Company Number: US-SA-SAC20210303000288

PATIENT
  Age: 70 Year
  Sex: Female

DRUGS (2)
  1. FAMOTIDINE [Suspect]
     Active Substance: FAMOTIDINE
     Indication: Product used for unknown indication
     Dosage: UNK
     Route: 065
  2. DUPIXENT [Suspect]
     Active Substance: DUPILUMAB
     Indication: Asthma
     Dosage: 300 MILLIGRAM, EVERY 2 WEEK
     Route: 065
     Dates: start: 20201105

REACTIONS (4)
  - Fall [Recovering/Resolving]
  - Ankle fracture [Recovering/Resolving]
  - Dizziness [Recovering/Resolving]
  - Product use issue [Unknown]
